FAERS Safety Report 25463287 (Version 2)
Quarter: 2025Q2

REPORT INFORMATION
  Report Type: Spontaneous
  Country: FR (occurrence: FR)
  Receive Date: 20250620
  Receipt Date: 20250625
  Transmission Date: 20250716
  Serious: Yes (Other)
  Sender: BAUSCH AND LOMB
  Company Number: FR-BAUSCH-BL-2025-007590

PATIENT
  Age: 36 Year
  Sex: Female
  Weight: 86 kg

DRUGS (4)
  1. HYDROCORTISONE [Suspect]
     Active Substance: HYDROCORTISONE
     Indication: Pituitary tumour benign
     Route: 065
     Dates: start: 202404, end: 20250114
  2. DOSTINEX [Suspect]
     Active Substance: CABERGOLINE
     Indication: Pituitary tumour benign
     Route: 065
     Dates: start: 202404, end: 20250114
  3. LEVOTHYROXINE SODIUM [Suspect]
     Active Substance: LEVOTHYROXINE SODIUM
     Indication: Pituitary tumour benign
     Route: 065
     Dates: start: 202404, end: 20250114
  4. FOLIC ACID [Suspect]
     Active Substance: FOLIC ACID
     Indication: Product used for unknown indication
     Route: 065

REACTIONS (3)
  - Gestational diabetes [Unknown]
  - Maternal exposure during pregnancy [Recovered/Resolved]
  - Off label use [Recovered/Resolved]

NARRATIVE: CASE EVENT DATE: 20240101
